FAERS Safety Report 9397156 (Version 1)
Quarter: 2013Q3

REPORT INFORMATION
  Report Type: Spontaneous
  Country: IT (occurrence: IT)
  Receive Date: 20130712
  Receipt Date: 20130712
  Transmission Date: 20140515
  Serious: Yes (Hospitalization)
  Sender: FDA-Public Use
  Company Number: PHHY2013IT046785

PATIENT
  Age: 49 Year
  Sex: Male

DRUGS (2)
  1. TEGRETOL [Suspect]
     Indication: PARTIAL SEIZURES
     Dosage: 2 DF, DAILY
     Route: 048
     Dates: start: 20130312, end: 20130417
  2. PIPERACILIN/TAZOBACTAM [Concomitant]
     Indication: PYREXIA

REACTIONS (2)
  - Neutropenia [Recovered/Resolved]
  - Leukopenia [Recovered/Resolved]
